FAERS Safety Report 11326876 (Version 1)
Quarter: 2015Q3

REPORT INFORMATION
  Report Type: Spontaneous
  Country: US (occurrence: US)
  Receive Date: 20150731
  Receipt Date: 20150731
  Transmission Date: 20151125
  Serious: Yes (Life-Threatening, Hospitalization, Other)
  Sender: FDA-Public Use
  Company Number: US-ACTAVIS-2015-15760

PATIENT
  Age: 30 Year
  Sex: Female

DRUGS (1)
  1. DIPHENHYDRAMINE (WATSON LABORATORIES) [Suspect]
     Active Substance: DIPHENHYDRAMINE
     Indication: PRODUCT USED FOR UNKNOWN INDICATION
     Dosage: UNK
     Route: 065

REACTIONS (5)
  - Cardiac arrest [Recovered/Resolved]
  - Seizure [Unknown]
  - Tachycardia [Recovering/Resolving]
  - Overdose [Recovering/Resolving]
  - Metabolic acidosis [Unknown]
